FAERS Safety Report 15759689 (Version 1)
Quarter: 2018Q4

REPORT INFORMATION
  Report Type: Report from Study
  Country: None (occurrence: GT)
  Receive Date: 20181226
  Receipt Date: 20181226
  Transmission Date: 20190205
  Serious: Yes (Hospitalization)
  Sender: FDA-Public Use
  Company Number: GT-ABBVIE-18S-069-2600825-00

PATIENT
  Age: 38 Year
  Sex: Male
  Weight: 110 kg

DRUGS (5)
  1. PLENDIL [Concomitant]
     Active Substance: FELODIPINE
     Indication: HYPERTENSION
     Route: 048
  2. ZEMPLAR [Suspect]
     Active Substance: PARICALCITOL
     Indication: HYPERPARATHYROIDISM SECONDARY
     Route: 042
     Dates: start: 20160802
  3. PLENDIL [Concomitant]
     Active Substance: FELODIPINE
     Indication: TACHYCARDIA
  4. INHIBACE [Concomitant]
     Active Substance: CILAZAPRIL ANHYDROUS
     Indication: HYPERTENSION
     Route: 048
  5. ERYTHROPOIETIN [Concomitant]
     Active Substance: ERYTHROPOIETIN
     Indication: HAEMOGLOBIN
     Route: 042

REACTIONS (2)
  - Abscess limb [Not Recovered/Not Resolved]
  - Fistula repair [Not Recovered/Not Resolved]

NARRATIVE: CASE EVENT DATE: 20181212
